FAERS Safety Report 14280691 (Version 2)
Quarter: 2017Q4

REPORT INFORMATION
  Report Type: Spontaneous
  Country: US (occurrence: US)
  Receive Date: 20171213
  Receipt Date: 20171219
  Transmission Date: 20180321
  Serious: Yes (Other)
  Sender: FDA-Public Use
  Company Number: US-009507513-1712USA002362

PATIENT
  Age: 42 Year
  Sex: Female

DRUGS (2)
  1. BELSOMRA [Suspect]
     Active Substance: SUVOREXANT
     Indication: INSOMNIA
     Dosage: 10 MG, UNK
     Route: 048
     Dates: start: 201709, end: 2017
  2. BELSOMRA [Suspect]
     Active Substance: SUVOREXANT
     Dosage: 20 MG, UNK
     Route: 048
     Dates: start: 2017, end: 2017

REACTIONS (10)
  - Face injury [Unknown]
  - Contusion [Unknown]
  - Contusion [Not Recovered/Not Resolved]
  - Eye contusion [Unknown]
  - Amnesia [Unknown]
  - Head injury [Unknown]
  - Adverse event [Unknown]
  - Limb injury [Unknown]
  - Abnormal sleep-related event [Unknown]
  - Mental disorder [Unknown]

NARRATIVE: CASE EVENT DATE: 2017
